FAERS Safety Report 4717344-6 (Version None)
Quarter: 2005Q3

REPORT INFORMATION
  Report Type: 
  Country: None (occurrence: None)
  Receive Date: 20050718
  Receipt Date: 20040602
  Transmission Date: 20060218
  Serious: Yes (Other)
  Sender: FDA-Public Use
  Company Number: CIO04013915

PATIENT
  Age: 22 Year
  Sex: Male

DRUGS (1)
  1. PEPTO-BISMOL, FORM/VERSION/FLAVOR UNKNOWN (BISMUTH SUBSALICYLATE 262 O [Suspect]
     Dosage: UNK, 1 DF, (SEE IMAGE)
     Dates: start: 20040601, end: 20040601

REACTIONS (1)
  - ANAPHYLACTIC REACTION [None]
